FAERS Safety Report 17745304 (Version 1)
Quarter: 2020Q2

REPORT INFORMATION
  Report Type: Spontaneous
  Country: US (occurrence: US)
  Receive Date: 20200505
  Receipt Date: 20200505
  Transmission Date: 20200714
  Serious: Yes (Death)
  Sender: FDA-Public Use
  Company Number: None

PATIENT
  Age: 60 Year
  Sex: Male
  Weight: 67.95 kg

DRUGS (9)
  1. VENTOLIN [Concomitant]
     Active Substance: ALBUTEROL SULFATE
     Dates: end: 20200505
  2. OMEPRAZOLE. [Concomitant]
     Active Substance: OMEPRAZOLE
     Dates: end: 20200505
  3. MEGESTROL [Concomitant]
     Active Substance: MEGESTROL
     Dates: end: 20200505
  4. ZITHROMAX [Concomitant]
     Active Substance: AZITHROMYCIN DIHYDRATE
     Dates: end: 20200505
  5. ZYPREXA [Concomitant]
     Active Substance: OLANZAPINE
     Dates: end: 20200505
  6. KEYTRUDA [Concomitant]
     Active Substance: PEMBROLIZUMAB
     Dates: end: 20200505
  7. TEMOZOLAMIDE [Suspect]
     Active Substance: TEMOZOLOMIDE
     Indication: LUNG NEOPLASM MALIGNANT
     Route: 048
     Dates: start: 20191226, end: 20200505
  8. TEMOZOLOMIDE. [Suspect]
     Active Substance: TEMOZOLOMIDE
     Indication: LUNG NEOPLASM MALIGNANT
     Route: 048
     Dates: start: 20191226, end: 20200505
  9. LORAZEPAM. [Concomitant]
     Active Substance: LORAZEPAM
     Dates: end: 20200505

REACTIONS (1)
  - Death [None]

NARRATIVE: CASE EVENT DATE: 20200504
